FAERS Safety Report 24655299 (Version 3)
Quarter: 2025Q1

REPORT INFORMATION
  Report Type: Report from Study
  Country: US (occurrence: US)
  Receive Date: 20241123
  Receipt Date: 20250101
  Transmission Date: 20250408
  Serious: Yes (Other)
  Sender: UCB
  Company Number: US-UCBSA-2024060109

PATIENT
  Sex: Male

DRUGS (3)
  1. FINTEPLA [Suspect]
     Active Substance: FENFLURAMINE
     Indication: Lennox-Gastaut syndrome
     Dosage: 6 MILLILITER, 2X/DAY (BID)
     Dates: start: 20231123
  2. FINTEPLA [Suspect]
     Active Substance: FENFLURAMINE
  3. FINTEPLA [Suspect]
     Active Substance: FENFLURAMINE
     Route: 048
     Dates: end: 20240901

REACTIONS (6)
  - Seizure [Not Recovered/Not Resolved]
  - Tic [Not Recovered/Not Resolved]
  - Decreased appetite [Recovering/Resolving]
  - Lethargy [Recovering/Resolving]
  - Confusional state [Recovering/Resolving]
  - Therapy interrupted [Unknown]
